FAERS Safety Report 4868331-9 (Version None)
Quarter: 2005Q4

REPORT INFORMATION
  Report Type: 
  Country: None (occurrence: None)
  Receive Date: 20051229
  Receipt Date: 20051005
  Transmission Date: 20060501
  Serious: Yes (Hospitalization)
  Sender: FDA-Public Use
  Company Number: US-MERCK-0510USA04770

PATIENT
  Age: 61 Year
  Sex: Female
  Weight: 57 kg

DRUGS (3)
  1. VIOXX [Suspect]
     Indication: ARTHRITIS
     Route: 048
     Dates: start: 19990101, end: 20040901
  2. PREDNISONE [Concomitant]
     Route: 065
  3. CALCIUM (UNSPECIFIED) [Concomitant]
     Route: 065

REACTIONS (7)
  - ANKLE FRACTURE [None]
  - BUNION [None]
  - CHEST PAIN [None]
  - COLON CANCER [None]
  - LOWER LIMB FRACTURE [None]
  - PULMONARY EMBOLISM [None]
  - THROMBOSIS [None]
